FAERS Safety Report 22656593 (Version 1)
Quarter: 2023Q2

REPORT INFORMATION
  Report Type: Report from Study
  Country: CA (occurrence: CA)
  Receive Date: 20230630
  Receipt Date: 20230630
  Transmission Date: 20230722
  Serious: Yes (Hospitalization)
  Sender: FDA-Public Use
  Company Number: CA-ABBVIE-5310163

PATIENT
  Age: 40 Year
  Sex: Female

DRUGS (1)
  1. GLECAPREVIR\PIBRENTASVIR [Suspect]
     Active Substance: GLECAPREVIR\PIBRENTASVIR
     Indication: Chronic hepatitis C
     Dosage: TIME INTERVAL: 0.33333333 DAYS: 100/40 MG TABLETS?LAST ADMIN DATE 2023
     Route: 048
     Dates: start: 20230425

REACTIONS (1)
  - Injury [Not Recovered/Not Resolved]

NARRATIVE: CASE EVENT DATE: 20230601
